FAERS Safety Report 6757865-8 (Version None)
Quarter: 2010Q2

REPORT INFORMATION
  Report Type: 
  Country: None (occurrence: None)
  Receive Date: 20100604
  Receipt Date: 20100604
  Transmission Date: 20101027
  Serious: No
  Sender: FDA-Public Use
  Company Number: None

PATIENT
  Age: 58 Year
  Sex: Female
  Weight: 70.7611 kg

DRUGS (1)
  1. SCULPTRA AESTHETIC [Suspect]
     Indication: FACIAL WASTING
     Dates: start: 20090115, end: 20090815

REACTIONS (2)
  - DEFORMITY [None]
  - SKIN NODULE [None]
